FAERS Safety Report 9417519 (Version 1)
Quarter: 2013Q3

REPORT INFORMATION
  Report Type: Spontaneous
  Country: AU (occurrence: AU)
  Receive Date: 20130724
  Receipt Date: 20130724
  Transmission Date: 20140515
  Serious: Yes (Hospitalization)
  Sender: FDA-Public Use
  Company Number: AU-PFIZER INC-2013154680

PATIENT
  Sex: Female

DRUGS (2)
  1. LYRICA [Suspect]
     Indication: TRIGEMINAL NEURALGIA
     Dosage: 75 MG, UNK
  2. LYRICA [Suspect]
     Dosage: 75 MG, 4X/DAY

REACTIONS (12)
  - Diplopia [Recovered/Resolved]
  - Palpitations [Recovered/Resolved]
  - Feeling abnormal [Unknown]
  - Vision blurred [Recovered/Resolved]
  - Insomnia [Recovered/Resolved]
  - Hallucination [Recovered/Resolved]
  - Formication [Recovered/Resolved]
  - Tremor [Recovered/Resolved]
  - Fatigue [Recovered/Resolved]
  - Dysstasia [Recovered/Resolved]
  - Malaise [Unknown]
  - Dizziness [Unknown]
